FAERS Safety Report 4673962-5 (Version None)
Quarter: 2005Q2

REPORT INFORMATION
  Report Type: 
  Country: None (occurrence: None)
  Receive Date: 20050524
  Receipt Date: 20050504
  Transmission Date: 20051028
  Serious: Yes (Other)
  Sender: FDA-Public Use
  Company Number: DE_050515857

PATIENT
  Age: 15 Year
  Sex: Male
  Weight: 57 kg

DRUGS (1)
  1. STRATTERA [Suspect]
     Indication: ATTENTION DEFICIT/HYPERACTIVITY DISORDER
     Dosage: 70 MG DAY
     Dates: start: 20050324, end: 20050504

REACTIONS (10)
  - ABDOMINAL PAIN [None]
  - AUTOIMMUNE DISORDER [None]
  - CONDITION AGGRAVATED [None]
  - DISTURBANCE IN ATTENTION [None]
  - DIZZINESS [None]
  - FATIGUE [None]
  - FEELING ABNORMAL [None]
  - POLYGLANDULAR DISORDER [None]
  - SKIN DISCOLOURATION [None]
  - VASOCONSTRICTION [None]
